FAERS Safety Report 6605201-X (Version None)
Quarter: 2010Q1

REPORT INFORMATION
  Report Type: 
  Country: None (occurrence: None)
  Receive Date: 20100226
  Receipt Date: 20100216
  Transmission Date: 20100710
  Serious: Yes (Hospitalization, Other)
  Sender: FDA-Public Use
  Company Number: JP-GENZYME-THYM-1001386

PATIENT
  Age: 15 Year
  Sex: Male
  Weight: 50 kg

DRUGS (47)
  1. THYMOGLOBULIN [Suspect]
     Indication: BONE MARROW CONDITIONING REGIMEN
     Dosage: 62.5 MG, QD
     Route: 042
     Dates: start: 20090322, end: 20090325
  2. LOXOPROFEN SODIUM [Concomitant]
     Indication: PREMEDICATION
     Dosage: UNK
     Dates: start: 20090322, end: 20090323
  3. FLUCONAZOLE [Concomitant]
     Indication: ANTIFUNGAL PROPHYLAXIS
     Dosage: UNK
     Dates: start: 20090323, end: 20090324
  4. SODIUM ALGINATE [Concomitant]
     Indication: PROPHYLAXIS
     Dosage: UNK
     Dates: start: 20090325, end: 20090326
  5. LEVOFLOXACIN [Concomitant]
     Indication: INFECTION PROPHYLAXIS
     Dosage: UNK
     Dates: start: 20090326, end: 20090413
  6. URSODEOXYCHOLIC ACID [Concomitant]
     Indication: PROPHYLAXIS
     Dosage: UNK
     Dates: start: 20090326, end: 20090429
  7. POLAPREZINC [Concomitant]
     Indication: PROPHYLAXIS
     Dosage: UNK
     Dates: start: 20090326, end: 20090422
  8. LOPERAMIDE HYDROCHLORIDE [Concomitant]
     Indication: DIARRHOEA
     Dosage: UNK
     Dates: start: 20090331, end: 20090402
  9. NIFEDIPINE [Concomitant]
     Indication: HYPERTENSION
     Dosage: UNK
     Dates: start: 20090327, end: 20090327
  10. ANTIBIOTICS-RESISTANT LACTIC ACID BACTERIAE [Concomitant]
     Indication: DIARRHOEA
     Dosage: UNK
     Dates: start: 20090401, end: 20090506
  11. OMEPRAZOLE [Concomitant]
     Indication: PROPHYLAXIS AGAINST GASTROINTESTINAL ULCER
     Dosage: UNK
     Dates: start: 20090409, end: 20090422
  12. OMEPRAZOLE [Concomitant]
     Dosage: UNK
     Dates: start: 20090325, end: 20090707
  13. ACYCLOVIR [Concomitant]
     Indication: ANTIVIRAL PROPHYLAXIS
     Dosage: UNK
     Dates: start: 20090327, end: 20090413
  14. ACYCLOVIR [Concomitant]
     Dosage: UNK
     Dates: start: 20090414, end: 20090701
  15. ITRACONAZOLE [Concomitant]
     Indication: ANTIFUNGAL PROPHYLAXIS
     Dosage: UNK
     Dates: start: 20090416
  16. TACROLIMUS [Concomitant]
     Indication: PROPHYLAXIS AGAINST GRAFT VERSUS HOST DISEASE
     Dosage: UNK
     Dates: start: 20090326, end: 20090422
  17. TACROLIMUS [Concomitant]
     Indication: GRAFT VERSUS HOST DISEASE
     Dosage: UNK
     Dates: start: 20090422, end: 20090602
  18. TACROLIMUS [Concomitant]
     Dosage: UNK
     Dates: start: 20090804
  19. TRIMETHOPRIM + SULFAMETHOXAZOLE [Concomitant]
     Indication: ANTIFUNGAL PROPHYLAXIS
     Dosage: UNK
     Dates: start: 20090430
  20. DICYCLOMINE HYDROCHLORIDE [Concomitant]
     Indication: PROPHYLAXIS
     Dosage: UNK
     Dates: start: 20090511, end: 20090617
  21. FAMOTIDINE [Concomitant]
     Indication: PROPHYLAXIS
     Dosage: UNK
     Dates: start: 20090604
  22. FAMOTIDINE [Concomitant]
     Indication: PROPHYLAXIS AGAINST GASTROINTESTINAL ULCER
  23. REBAMIPIDE [Concomitant]
     Indication: PROPHYLAXIS
     Dosage: UNK
     Dates: start: 20090620, end: 20090706
  24. AMOXICILLIN [Concomitant]
     Indication: PHARYNGITIS
     Dosage: UNK
     Dates: start: 20090629, end: 20090629
  25. VALGANCICLOVIR HCL [Concomitant]
     Indication: CYTOMEGALOVIRUS INFECTION
     Dosage: UNK
     Dates: start: 20090701, end: 20090730
  26. PREDNISOLONE [Concomitant]
     Indication: GRAFT VERSUS HOST DISEASE
     Dosage: UNK
     Dates: start: 20090803
  27. LENOGRASTIM [Concomitant]
     Indication: NEUTROPENIA
     Dosage: UNK
     Dates: start: 20090401, end: 20090722
  28. CEFOZOPRAN HYDROCHLORIDE [Concomitant]
     Indication: INFECTION
     Dosage: UNK
     Dates: start: 20090702, end: 20090706
  29. NORMAL HUMAN IMMUNOGLOBULIN [Concomitant]
     Indication: HYPOGAMMAGLOBULINAEMIA
     Dosage: UNK
     Dates: start: 20090328, end: 20090702
  30. GANCICLOVIR [Concomitant]
     Indication: CYTOMEGALOVIRUS INFECTION
     Dosage: UNK
     Dates: start: 20090319, end: 20090515
  31. DANAPAROID SODIUM [Concomitant]
     Indication: PROPHYLAXIS
     Dosage: UNK
     Dates: start: 20090321, end: 20090427
  32. CEFOTIAM HYDROCHLORIDE [Concomitant]
     Indication: ANTIBIOTIC PROPHYLAXIS
     Dosage: UNK
     Dates: start: 20090403, end: 20090424
  33. HIGH-CALORIE INFUSION [Concomitant]
     Indication: DRUG USE FOR UNKNOWN INDICATION
     Dosage: UNK
     Dates: start: 20090329, end: 20090413
  34. MICAFUNGIN SODIUM [Concomitant]
     Indication: ANTIFUNGAL PROPHYLAXIS
     Dosage: UNK
     Dates: start: 20090325, end: 20090416
  35. MONOAMMONIUM GLYCYRRHIZINATE [Concomitant]
     Indication: LIVER DISORDER
     Dosage: UNK
     Dates: start: 20090101, end: 20090413
  36. FLOMOXEF SODIUM [Concomitant]
     Indication: INFECTION
     Dosage: UNK
     Dates: start: 20090330, end: 20090403
  37. CEFEPIME HYDROCHLORIDE [Concomitant]
     Indication: INFECTION
     Dosage: UNK
     Dates: start: 20090325, end: 20090330
  38. METHOTREXATE [Concomitant]
     Indication: PROPHYLAXIS AGAINST GRAFT VERSUS HOST DISEASE
     Dosage: UNK
     Dates: start: 20090328, end: 20090407
  39. GRANISETRON HYDROCHLORIDE [Concomitant]
     Indication: ANTIEMETIC SUPPORTIVE CARE
     Dosage: UNK
     Dates: start: 20090322, end: 20090325
  40. MESNA [Concomitant]
     Indication: PROPHYLAXIS
     Dosage: UNK
     Dates: start: 20090322, end: 20090325
  41. METHYLPREDNISOLONE SODIUM SUCCINATE [Concomitant]
     Indication: PROPHYLAXIS
     Dosage: UNK
     Dates: start: 20090322, end: 20090326
  42. FLUDARABINE PHOSPHATE [Concomitant]
     Indication: BONE MARROW CONDITIONING REGIMEN
     Dosage: UNK
     Dates: start: 20090322, end: 20090325
  43. CYCLOPHOSPHAMIDE [Concomitant]
     Indication: BONE MARROW CONDITIONING REGIMEN
     Dosage: UNK
     Dates: start: 20090322, end: 20090325
  44. SODIUM BICARBONATE [Concomitant]
     Indication: CYSTITIS HAEMORRHAGIC
     Dosage: UNK
     Dates: start: 20090322, end: 20090326
  45. CEFTRIAXONE SODIUM [Concomitant]
     Indication: INFECTION PROPHYLAXIS
     Dosage: UNK
     Dates: start: 20090325, end: 20090325
  46. FUROSEMIDE [Concomitant]
     Indication: POLYURIA
     Dosage: UNK
     Dates: start: 20090323, end: 20090329
  47. CARBAZOCHROME SODIUM SULFONATE [Concomitant]
     Indication: CYSTITIS HAEMORRHAGIC
     Dosage: UNK
     Dates: start: 20090328, end: 20090331

REACTIONS (11)
  - ACUTE GRAFT VERSUS HOST DISEASE [None]
  - C-REACTIVE PROTEIN INCREASED [None]
  - DIARRHOEA [None]
  - EPSTEIN-BARR VIRUS INFECTION [None]
  - HEPATIC FUNCTION ABNORMAL [None]
  - HYPERAMYLASAEMIA [None]
  - HYPOMAGNESAEMIA [None]
  - INFECTION [None]
  - LYMPHOPROLIFERATIVE DISORDER [None]
  - MUCOUS MEMBRANE DISORDER [None]
  - PYREXIA [None]
